FAERS Safety Report 6252562-X (Version None)
Quarter: 2009Q3

REPORT INFORMATION
  Report Type: 
  Country: None (occurrence: None)
  Receive Date: 20090701
  Receipt Date: 20090622
  Transmission Date: 20100115
  Serious: Yes (Disabling)
  Sender: FDA-Public Use
  Company Number: JP-ASTRAZENECA-2009SE02294

PATIENT
  Age: 27248 Day
  Sex: Male
  Weight: 59 kg

DRUGS (2)
  1. CRESTOR [Suspect]
     Indication: HYPERCHOLESTEROLAEMIA
     Route: 048
     Dates: start: 20080401, end: 20080627
  2. LIPITOR [Concomitant]
     Dates: start: 20050701, end: 20080301

REACTIONS (1)
  - APLASTIC ANAEMIA [None]
